FAERS Safety Report 25711903 (Version 1)
Quarter: 2025Q3

REPORT INFORMATION
  Report Type: Spontaneous
  Country: EU (occurrence: EU)
  Receive Date: 20250821
  Receipt Date: 20250821
  Transmission Date: 20251021
  Serious: Yes (Other)
  Sender: NOVARTIS
  Company Number: None

PATIENT
  Age: 25 Year
  Sex: Male
  Weight: 54.5 kg

DRUGS (15)
  1. NEORAL [Interacting]
     Active Substance: CYCLOSPORINE
     Indication: Prophylaxis against transplant rejection
     Dosage: 200 MG, QD
     Route: 048
     Dates: start: 20241118, end: 20241204
  2. NEORAL [Interacting]
     Active Substance: CYCLOSPORINE
     Dosage: 290 MG, QD
     Route: 048
     Dates: start: 20241205, end: 20241217
  3. NEORAL [Interacting]
     Active Substance: CYCLOSPORINE
     Dosage: 260 MG, QD
     Route: 048
     Dates: start: 20241218, end: 20250101
  4. NEORAL [Interacting]
     Active Substance: CYCLOSPORINE
     Dosage: 180 MG, QD
     Route: 048
     Dates: start: 20250102, end: 20250129
  5. NEORAL [Interacting]
     Active Substance: CYCLOSPORINE
     Dosage: 200 MG, QD
     Route: 048
     Dates: start: 20250130, end: 20250211
  6. NEORAL [Interacting]
     Active Substance: CYCLOSPORINE
     Dosage: 220 MG, QD
     Route: 048
     Dates: start: 20250212, end: 20250217
  7. NEORAL [Interacting]
     Active Substance: CYCLOSPORINE
     Dosage: 200 MG, QD
     Route: 048
     Dates: start: 20250218, end: 20250326
  8. NEORAL [Interacting]
     Active Substance: CYCLOSPORINE
     Dosage: 280 MG, QD
     Route: 048
     Dates: start: 20250327, end: 20250617
  9. NEORAL [Interacting]
     Active Substance: CYCLOSPORINE
     Dosage: 180 MG, QD
     Route: 048
     Dates: start: 20250618
  10. CERTICAN [Interacting]
     Active Substance: EVEROLIMUS
     Indication: Prophylaxis against transplant rejection
     Dosage: 1.25 MG, QD
     Route: 048
     Dates: start: 20241217, end: 20250326
  11. CERTICAN [Interacting]
     Active Substance: EVEROLIMUS
     Dosage: 1 MG, QD
     Route: 048
     Dates: start: 20250327, end: 20250617
  12. CERTICAN [Interacting]
     Active Substance: EVEROLIMUS
     Dosage: 0.5 MG, QD
     Route: 048
     Dates: start: 20250618, end: 20250729
  13. CERTICAN [Interacting]
     Active Substance: EVEROLIMUS
     Dosage: 1.5 MG, QD
     Route: 048
     Dates: start: 20250730
  14. CRESEMBA [Interacting]
     Active Substance: ISAVUCONAZONIUM SULFATE
     Indication: Aspergillus infection
     Dosage: 600 MG, QD
     Route: 048
     Dates: start: 20250605, end: 20250606
  15. CRESEMBA [Interacting]
     Active Substance: ISAVUCONAZONIUM SULFATE
     Dosage: 200 MG, QD
     Route: 048
     Dates: start: 20250607, end: 20250619

REACTIONS (1)
  - Acute kidney injury [Recovering/Resolving]

NARRATIVE: CASE EVENT DATE: 20250612
